FAERS Safety Report 13726105 (Version 3)
Quarter: 2017Q3

REPORT INFORMATION
  Report Type: Report from Study
  Country: US (occurrence: US)
  Receive Date: 20170706
  Receipt Date: 20170809
  Transmission Date: 20171127
  Serious: Yes (Other)
  Sender: FDA-Public Use
  Company Number: US-GILEAD-2017-0280730

PATIENT
  Age: 82 Year
  Sex: Female
  Weight: 59 kg

DRUGS (2)
  1. IDELALISIB [Suspect]
     Active Substance: IDELALISIB
     Indication: CHRONIC LYMPHOCYTIC LEUKAEMIA
     Dosage: 150 MG, BID
     Route: 048
     Dates: start: 20150212
  2. IDELALISIB [Suspect]
     Active Substance: IDELALISIB
     Indication: WHITE BLOOD CELL COUNT INCREASED

REACTIONS (4)
  - Chronic lymphocytic leukaemia [Unknown]
  - Dysphonia [Not Recovered/Not Resolved]
  - Cough [Not Recovered/Not Resolved]
  - White blood cell count increased [Unknown]
